FAERS Safety Report 7177019-3 (Version None)
Quarter: 2010Q4

REPORT INFORMATION
  Report Type: 
  Country: None (occurrence: None)
  Receive Date: 20101220
  Receipt Date: 20101210
  Transmission Date: 20110411
  Serious: Yes (Hospitalization, Other)
  Sender: FDA-Public Use
  Company Number: US-US-EMD SERONO, INC.-7023936

PATIENT
  Sex: Female
  Weight: 103 kg

DRUGS (8)
  1. REBIF [Suspect]
     Indication: RELAPSING-REMITTING MULTIPLE SCLEROSIS
     Route: 058
     Dates: start: 20060130
  2. EFFEXOR [Concomitant]
     Indication: RELAPSING-REMITTING MULTIPLE SCLEROSIS
  3. LYRICA [Concomitant]
     Indication: FIBROMYALGIA
     Dates: start: 20090101
  4. ENABLEX [Concomitant]
     Indication: BLADDER DISORDER
  5. VITAMIN B-12 [Concomitant]
  6. METOPROLOL TARTRATE [Concomitant]
     Indication: HYPERTENSION
  7. BACLOFEN [Concomitant]
     Indication: RELAPSING-REMITTING MULTIPLE SCLEROSIS
  8. FUROSEMIDE [Concomitant]
     Indication: CARDIAC FAILURE CONGESTIVE

REACTIONS (7)
  - CEREBROVASCULAR ACCIDENT [None]
  - DYSPHAGIA [None]
  - FEELING OF BODY TEMPERATURE CHANGE [None]
  - HYPERHIDROSIS [None]
  - NEURALGIA [None]
  - PERICARDIAL EFFUSION [None]
  - SYNCOPE [None]
